FAERS Safety Report 13943780 (Version 1)
Quarter: 2017Q3

REPORT INFORMATION
  Report Type: Spontaneous
  Country: IN (occurrence: IN)
  Receive Date: 20170907
  Receipt Date: 20170907
  Transmission Date: 20171128
  Serious: No
  Sender: FDA-Public Use
  Company Number: IN-LUPIN PHARMACEUTICALS INC.-2017-03279

PATIENT
  Age: 20 Year
  Sex: Male

DRUGS (2)
  1. MOXIFLOXACIN HYDROCHLORIDE. [Suspect]
     Active Substance: MOXIFLOXACIN HYDROCHLORIDE
     Indication: DRY EYE
     Dosage: 1 DROP IN EACH EYE THREE TIMES DAILY
     Route: 047
     Dates: start: 20170612, end: 20170617
  2. LACRYL SOOTHE [Concomitant]
     Indication: DRY EYE
     Dosage: 1 DROP IN EACH EYE FOUR TIMES DAILY
     Route: 047
     Dates: start: 20170612, end: 20170617

REACTIONS (2)
  - Product use in unapproved indication [Unknown]
  - Drug ineffective for unapproved indication [Unknown]
